FAERS Safety Report 6375450-7 (Version None)
Quarter: 2009Q3

REPORT INFORMATION
  Report Type: 
  Country: None (occurrence: None)
  Receive Date: 20090924
  Receipt Date: 20090910
  Transmission Date: 20100115
  Serious: Yes (Other)
  Sender: FDA-Public Use
  Company Number: US-ELI_LILLY_AND_COMPANY-US200909002653

PATIENT
  Sex: Female

DRUGS (3)
  1. EFFIENT [Suspect]
     Indication: ACUTE MYOCARDIAL INFARCTION
  2. REOPRO [Concomitant]
     Indication: ACUTE MYOCARDIAL INFARCTION
  3. ASPIRIN [Concomitant]
     Indication: ACUTE MYOCARDIAL INFARCTION

REACTIONS (1)
  - CORONARY ARTERY RESTENOSIS [None]
